FAERS Safety Report 13291979 (Version 3)
Quarter: 2017Q1

REPORT INFORMATION
  Report Type: Spontaneous
  Country: US (occurrence: US)
  Receive Date: 20170303
  Receipt Date: 20170324
  Transmission Date: 20170428
  Serious: Yes (Other)
  Sender: FDA-Public Use
  Company Number: US-GLAXOSMITHKLINE-US2017028937

PATIENT
  Sex: Male
  Weight: 78.91 kg

DRUGS (5)
  1. ALBUTEROL. [Suspect]
     Active Substance: ALBUTEROL
     Indication: ILL-DEFINED DISORDER
  2. METOPROLOL. [Concomitant]
     Active Substance: METOPROLOL
  3. ALBUTEROL. [Suspect]
     Active Substance: ALBUTEROL
     Indication: RESPIRATION ABNORMAL
     Dosage: UNK UNK, U
     Route: 055
  4. ANORO ELLIPTA [Suspect]
     Active Substance: UMECLIDINIUM BROMIDE\VILANTEROL TRIFENATATE
     Indication: CHRONIC OBSTRUCTIVE PULMONARY DISEASE
     Dosage: 1 PUFF(S), QD
     Route: 055
     Dates: start: 20140529
  5. RAMIPRIL. [Concomitant]
     Active Substance: RAMIPRIL

REACTIONS (8)
  - Overdose [Unknown]
  - Acute myocardial infarction [Unknown]
  - Chronic obstructive pulmonary disease [Unknown]
  - Cardiovascular disorder [Unknown]
  - Dyspnoea [Unknown]
  - Respiration abnormal [Unknown]
  - Intentional product misuse [Unknown]
  - Ill-defined disorder [Unknown]
